FAERS Safety Report 22223308 (Version 1)
Quarter: 2023Q2

REPORT INFORMATION
  Report Type: Spontaneous
  Country: US (occurrence: US)
  Receive Date: 20230418
  Receipt Date: 20230418
  Transmission Date: 20230722
  Serious: Yes (Other)
  Sender: FDA-Public Use
  Company Number: US-BRISTOL-MYERS SQUIBB COMPANY-2023-051110

PATIENT
  Age: 76 Year
  Sex: Female
  Weight: 85.28 kg

DRUGS (1)
  1. REVLIMID [Suspect]
     Active Substance: LENALIDOMIDE
     Indication: Plasma cell myeloma
     Dosage: 21DAYS ON, 7 OFF.
     Route: 048

REACTIONS (3)
  - Toothache [Recovered/Resolved]
  - Nervous system disorder [Unknown]
  - Back pain [Unknown]
